FAERS Safety Report 5145202-4 (Version None)
Quarter: 2006Q4

REPORT INFORMATION
  Report Type: 
  Country: None (occurrence: None)
  Receive Date: 20061107
  Receipt Date: 20061027
  Transmission Date: 20070319
  Serious: Yes (Hospitalization, Other)
  Sender: FDA-Public Use
  Company Number: 2006PK02253

PATIENT
  Sex: Female

DRUGS (1)
  1. ZOLADEX [Suspect]
     Indication: ENDOMETRIOSIS
     Route: 058

REACTIONS (1)
  - THROMBOCYTOPENIA [None]
